FAERS Safety Report 20139006 (Version 1)
Quarter: 2021Q4

REPORT INFORMATION
  Report Type: Spontaneous
  Country: US (occurrence: None)
  Receive Date: 20211201
  Receipt Date: 20211201
  Transmission Date: 20220303
  Serious: No
  Sender: FDA-Public Use
  Company Number: None

PATIENT

DRUGS (1)
  1. GLUCOPHAGE XR [Suspect]
     Active Substance: METFORMIN HYDROCHLORIDE
     Dates: start: 20210927, end: 20211123

REACTIONS (6)
  - Abdominal pain [None]
  - Dyspepsia [None]
  - Gastric dilatation [None]
  - Product substitution issue [None]
  - Recalled product [None]
  - Product contamination physical [None]

NARRATIVE: CASE EVENT DATE: 20211008
